FAERS Safety Report 5916015-8 (Version None)
Quarter: 2008Q4

REPORT INFORMATION
  Report Type: 
  Country: None (occurrence: None)
  Receive Date: 20081013
  Receipt Date: 20080930
  Transmission Date: 20090506
  Serious: Yes (Other)
  Sender: FDA-Public Use
  Company Number: CA-JNJFOC-20080606877

PATIENT
  Sex: Female
  Weight: 55 kg

DRUGS (4)
  1. REMICADE [Suspect]
     Dosage: INFUSION #35
     Route: 042
  2. REMICADE [Suspect]
     Dosage: INFUSION #34
     Route: 042
  3. REMICADE [Suspect]
     Indication: CROHN'S DISEASE
     Route: 042
  4. PREDNISONE [Concomitant]
     Dosage: FOR 5 DAYS
     Route: 048

REACTIONS (2)
  - CROHN'S DISEASE [None]
  - LOWER EXTREMITY MASS [None]
